FAERS Safety Report 4944947-6 (Version None)
Quarter: 2006Q1

REPORT INFORMATION
  Report Type: 
  Country: None (occurrence: None)
  Receive Date: 20060117
  Receipt Date: 20041130
  Transmission Date: 20060701
  Serious: Yes (Hospitalization)
  Sender: FDA-Public Use
  Company Number: A03200404024

PATIENT
  Age: 65 Year
  Sex: Male
  Weight: 98.4306 kg

DRUGS (16)
  1. PLAVIX [Suspect]
     Dosage: 75 MG QD - ORAL
     Route: 048
     Dates: end: 20041001
  2. COUMADIN [Suspect]
     Indication: COAGULOPATHY
     Dosage: ORAL
     Route: 048
     Dates: end: 20041001
  3. NESIRITIDE - SOLUTION [Suspect]
     Indication: CARDIAC FAILURE
     Dosage: 2 UG/KG BOLUS FOLLOWED BY 0.01 UG/KG/MIN OR PLACEBO - INTRAVENOUS BOLUS
     Route: 040
     Dates: start: 20040928
  4. ACETYLSALICYLIC ACID SRT [Concomitant]
  5. DIGOXIN [Concomitant]
  6. LANSOPRAZOLE [Concomitant]
  7. FUROSEMIDE [Concomitant]
  8. CARVEDILOL [Concomitant]
  9. SIMVASTATIN [Concomitant]
  10. SERTRALINE HYDROCHLORIDE [Concomitant]
  11. LOSARTAN POTASSIUM [Concomitant]
  12. AMLODIPINE BESYLATE [Concomitant]
  13. TRAZODONE HCL [Concomitant]
  14. INSULIN LISPRO [Concomitant]
  15. IRON [Concomitant]
  16. POTASSIUM CHLORIDE [Concomitant]

REACTIONS (2)
  - ANAEMIA [None]
  - CATHETER SITE HAEMORRHAGE [None]
